FAERS Safety Report 10607396 (Version 1)
Quarter: 2014Q4

REPORT INFORMATION
  Report Type: Spontaneous
  Country: BR (occurrence: BR)
  Receive Date: 20141125
  Receipt Date: 20141125
  Transmission Date: 20150529
  Serious: Yes (Hospitalization, Other)
  Sender: FDA-Public Use
  Company Number: BR-PFIZER INC-2014319511

PATIENT
  Age: 69 Year
  Sex: Male
  Weight: 80 kg

DRUGS (4)
  1. LIPITOR [Suspect]
     Active Substance: ATORVASTATIN CALCIUM
     Dosage: 20 MG, DAILY
     Route: 048
  2. ALOPURINOL [Concomitant]
     Active Substance: ALLOPURINOL
     Dosage: UNK
  3. ALDAZIDA [Suspect]
     Active Substance: HYDROCHLOROTHIAZIDE\SPIRONOLACTONE
     Dosage: 25 MG/25 MG, DAILY
     Route: 048
  4. CLOPIDOGREL [Concomitant]
     Active Substance: CLOPIDOGREL BISULFATE
     Dosage: UNK

REACTIONS (2)
  - Cerebrovascular accident [Unknown]
  - Coronary artery disease [Unknown]

NARRATIVE: CASE EVENT DATE: 2010
